FAERS Safety Report 5822532-1 (Version None)
Quarter: 2008Q3

REPORT INFORMATION
  Report Type: 
  Country: None (occurrence: None)
  Receive Date: 20080725
  Receipt Date: 20080715
  Transmission Date: 20090109
  Serious: Yes (Other)
  Sender: FDA-Public Use
  Company Number: US-AVENTIS-200718315US

PATIENT
  Sex: Male
  Weight: 62.6 kg

DRUGS (11)
  1. KETEK [Suspect]
     Dosage: DOSE: UNK SAMPLES
     Dates: start: 20041110, end: 20040101
  2. KETEK [Suspect]
     Dosage: DOSE: 400 MG SAMPLES
     Dates: start: 20050721, end: 20050101
  3. KETEK [Suspect]
     Indication: COUGH
     Dosage: DOSE: UNK SAMPLES
     Dates: start: 20041110, end: 20040101
  4. KETEK [Suspect]
     Dosage: DOSE: 400 MG SAMPLES
     Dates: start: 20050721, end: 20050101
  5. KETEK [Suspect]
     Dosage: DOSE: UNK SAMPLES
     Dates: start: 20041110, end: 20040101
  6. KETEK [Suspect]
     Dosage: DOSE: 400 MG SAMPLES
     Dates: start: 20050721, end: 20050101
  7. PREDNISONE TAB [Concomitant]
     Dosage: DOSE: UNK
     Dates: start: 20041101, end: 20040101
  8. ALLEGRA [Concomitant]
     Route: 048
     Dates: start: 20050721
  9. MULTI-VITAMINS [Concomitant]
     Dosage: DOSE: UNK
     Route: 048
  10. ASPIRIN [Concomitant]
     Route: 048
  11. PHENOBARBITAL TAB [Concomitant]
     Route: 048

REACTIONS (2)
  - HAEMANGIOMA OF LIVER [None]
  - INJURY [None]
